FAERS Safety Report 11706785 (Version 1)
Quarter: 2015Q4

REPORT INFORMATION
  Report Type: Spontaneous
  Country: US (occurrence: US)
  Receive Date: 20151106
  Receipt Date: 20151106
  Transmission Date: 20160304
  Serious: No
  Sender: FDA-Public Use
  Company Number: US-WATSON-2015-17216

PATIENT
  Sex: Male

DRUGS (1)
  1. ANDRODERM [Suspect]
     Active Substance: TESTOSTERONE
     Indication: BLOOD TESTOSTERONE DECREASED
     Dosage: 2 MG, DAILY
     Route: 062
     Dates: start: 200803

REACTIONS (3)
  - Therapy change [None]
  - Blood testosterone decreased [Not Recovered/Not Resolved]
  - Product adhesion issue [None]
